FAERS Safety Report 5020815-9 (Version None)
Quarter: 2006Q2

REPORT INFORMATION
  Report Type: 
  Country: None (occurrence: None)
  Receive Date: 20060608
  Receipt Date: 20060526
  Transmission Date: 20061013
  Serious: Yes (Other)
  Sender: FDA-Public Use
  Company Number: ES-JNJFOC-20060600033

PATIENT
  Age: 42 Year
  Sex: Female

DRUGS (2)
  1. TOPAMAX [Suspect]
     Indication: DEPRESSION
     Route: 048
  2. PAROXETINE HCL [Concomitant]
     Indication: DEPRESSION
     Route: 048

REACTIONS (2)
  - ANAEMIA VITAMIN B12 DEFICIENCY [None]
  - DEMENTIA [None]
